FAERS Safety Report 25146079 (Version 2)
Quarter: 2025Q2

REPORT INFORMATION
  Report Type: Report from Study
  Country: FR (occurrence: FR)
  Receive Date: 20250401
  Receipt Date: 20250410
  Transmission Date: 20250716
  Serious: Yes (Hospitalization)
  Sender: DAIICHI
  Company Number: FR-DSJP-DS-2025-132745-FR

PATIENT
  Sex: Female
  Weight: 70 kg

DRUGS (3)
  1. ENHERTU [Suspect]
     Active Substance: FAM-TRASTUZUMAB DERUXTECAN-NXKI
     Indication: HER2 low breast cancer
     Route: 042
     Dates: start: 20250121, end: 20250121
  2. ENHERTU [Suspect]
     Active Substance: FAM-TRASTUZUMAB DERUXTECAN-NXKI
     Indication: Breast cancer metastatic
     Route: 042
     Dates: start: 20250217, end: 20250217
  3. UNSPECIFIED INGREDIENT [Concomitant]
     Active Substance: UNSPECIFIED INGREDIENT
     Indication: Antiemetic supportive care
     Route: 065

REACTIONS (1)
  - Adverse event [Unknown]
